FAERS Safety Report 6030401-X (Version None)
Quarter: 2009Q1

REPORT INFORMATION
  Report Type: 
  Country: None (occurrence: None)
  Receive Date: 20090107
  Receipt Date: 20081229
  Transmission Date: 20090719
  Serious: Yes (Other)
  Sender: FDA-Public Use
  Company Number: US-PFIZER INC-2008161221

PATIENT
  Sex: Female
  Weight: 40.816 kg

DRUGS (6)
  1. DEPO-MEDROL [Suspect]
     Indication: SINUSITIS
     Dosage: 80 MG, SINGLE
     Route: 030
     Dates: start: 20081219, end: 20081219
  2. DEPO-MEDROL [Suspect]
     Indication: OTITIS MEDIA
  3. CEPHALEXIN [Suspect]
     Indication: SINUSITIS
     Dosage: 250 MG, UNK
  4. CEPHALEXIN [Suspect]
     Indication: OTITIS MEDIA
  5. CEFPROZIL [Concomitant]
  6. XANAX [Concomitant]
     Dosage: 0.25 MG, 4X/DAY

REACTIONS (4)
  - DIZZINESS [None]
  - EAR CONGESTION [None]
  - HYPOAESTHESIA FACIAL [None]
  - NAUSEA [None]
